FAERS Safety Report 21648367 (Version 1)
Quarter: 2022Q4

REPORT INFORMATION
  Report Type: Report from Study
  Country: US (occurrence: US)
  Receive Date: 20221128
  Receipt Date: 20221128
  Transmission Date: 20230113
  Serious: No
  Sender: FDA-Public Use
  Company Number: US-ABBVIE-4178307

PATIENT
  Sex: Male

DRUGS (1)
  1. SKYRIZI [Suspect]
     Active Substance: RISANKIZUMAB-RZAA
     Indication: Psoriasis
     Dosage: WEEK 4; FORM STRENGTH: 150 MILLIGRAM
     Route: 058
     Dates: start: 20220831

REACTIONS (4)
  - Eye infection [Recovered/Resolved]
  - Arthritis infective [Recovered/Resolved]
  - Psoriasis [Recovering/Resolving]
  - Skin hypertrophy [Unknown]
